FAERS Safety Report 8974037 (Version 1)
Quarter: 2012Q4

REPORT INFORMATION
  Report Type: 
  Country: US (occurrence: US)
  Receive Date: 20121218
  Receipt Date: 20121218
  Transmission Date: 20130627
  Serious: No
  Sender: FDA-Public Use
  Company Number: US-BRISTOL-MYERS SQUIBB COMPANY-16856502

PATIENT
  Age: 58 Year
  Sex: Female

DRUGS (6)
  1. ABILIFY [Suspect]
     Indication: MAJOR DEPRESSION
     Dosage: 5mg, dose incr to 10 mg
     Route: 048
     Dates: start: 20120415, end: 20120711
  2. ATIVAN [Concomitant]
     Indication: INSOMNIA
  3. ZOLOFT [Concomitant]
     Indication: MAJOR DEPRESSION
  4. FISH OIL [Concomitant]
  5. VITAMIN D [Concomitant]
  6. CALCIUM [Concomitant]

REACTIONS (9)
  - Malaise [Recovered/Resolved]
  - Influenza like illness [Recovered/Resolved]
  - Bone pain [Recovered/Resolved]
  - Insomnia [Recovering/Resolving]
  - Restlessness [Recovering/Resolving]
  - Musculoskeletal stiffness [Recovering/Resolving]
  - Headache [Recovering/Resolving]
  - Irritability [Recovering/Resolving]
  - Arthralgia [Recovering/Resolving]
